FAERS Safety Report 8812702 (Version 1)
Quarter: 2012Q4

REPORT INFORMATION
  Report Type: 
  Country: GB (occurrence: GB)
  Receive Date: 20120927
  Receipt Date: 20120927
  Transmission Date: 20130627
  Serious: Yes (Death)
  Sender: FDA-Public Use
  Company Number: GB-BAXTER-2012BAX018415

PATIENT

DRUGS (7)
  1. CYCLOPHOSPHAMIDE INJECTION 200MG [Suspect]
     Indication: HODGKIN^S LYMPHOMA
     Route: 042
  2. ONKOTRONE INJECTION (2MG/ML) [Suspect]
     Indication: HODGKIN^S LYMPHOMA
     Route: 042
  3. ETOPOSIDE [Suspect]
     Indication: HODGKIN^S LYMPHOMA
     Route: 042
  4. BLEOMYCIN [Suspect]
     Indication: HODGKIN^S LYMPHOMA
     Route: 042
  5. VINBLASTINE [Suspect]
     Indication: HODGKIN^S LYMPHOMA
     Route: 042
  6. PROCARBAZINE [Suspect]
     Indication: HODGKIN^S LYMPHOMA
  7. PREDNISOLONE [Suspect]
     Indication: HODGKIN^S LYMPHOMA
     Route: 042

REACTIONS (1)
  - Rectal cancer [Fatal]
